FAERS Safety Report 22094058 (Version 3)
Quarter: 2023Q2

REPORT INFORMATION
  Report Type: Report from Study
  Country: US (occurrence: US)
  Receive Date: 20230314
  Receipt Date: 20230411
  Transmission Date: 20230721
  Serious: Yes (Other)
  Sender: FDA-Public Use
  Company Number: US-ABBVIE-4338378

PATIENT
  Age: 59 Year
  Sex: Female

DRUGS (1)
  1. HUMIRA [Suspect]
     Active Substance: ADALIMUMAB
     Indication: Rheumatoid arthritis
     Dosage: FORM STRENGTH: 40 MG?CITRATE FREE
     Route: 058
     Dates: start: 202112

REACTIONS (9)
  - Deafness [Not Recovered/Not Resolved]
  - Depression [Unknown]
  - Insomnia [Not Recovered/Not Resolved]
  - Nerve injury [Not Recovered/Not Resolved]
  - Anxiety [Not Recovered/Not Resolved]
  - Ear inflammation [Not Recovered/Not Resolved]
  - Fatigue [Recovering/Resolving]
  - Stress [Unknown]
  - Auditory disorder [Unknown]

NARRATIVE: CASE EVENT DATE: 20211201
